FAERS Safety Report 24018200 (Version 1)
Quarter: 2024Q2

REPORT INFORMATION
  Report Type: Spontaneous
  Country: BE (occurrence: BE)
  Receive Date: 20240627
  Receipt Date: 20240627
  Transmission Date: 20240715
  Serious: Yes (Hospitalization, Other)
  Sender: FDA-Public Use
  Company Number: BE-ROCHE-10000007573

PATIENT
  Age: 81 Year
  Sex: Female
  Weight: 57.6 kg

DRUGS (6)
  1. LENALIDOMIDE [Suspect]
     Active Substance: LENALIDOMIDE
     Indication: Follicular lymphoma
     Dosage: 1 TO 21 OF EVERY CYCLE AT APPROXIMATELY THE SAME TIME EVERY DAY FOR 12 CYCLES)
     Route: 048
     Dates: start: 20211122
  2. LENALIDOMIDE [Suspect]
     Active Substance: LENALIDOMIDE
     Route: 048
     Dates: start: 20220509
  3. LENALIDOMIDE [Suspect]
     Active Substance: LENALIDOMIDE
     Route: 048
     Dates: start: 20220718
  4. TAFASITAMAB [Suspect]
     Active Substance: TAFASITAMAB
     Indication: Follicular lymphoma
     Dates: start: 20211122, end: 20220509
  5. TAFASITAMAB [Suspect]
     Active Substance: TAFASITAMAB
     Dates: start: 20220718
  6. RITUXIMAB [Suspect]
     Active Substance: RITUXIMAB
     Indication: Follicular lymphoma
     Dosage: ON DAYS 1, 8, 15 AND 22 OF CYCLE 1 AND ON DAY 1 OF CYCLES 2 TO 5
     Route: 042
     Dates: start: 20211122, end: 20220214

REACTIONS (2)
  - COVID-19 pneumonia [Recovered/Resolved]
  - COVID-19 [Recovered/Resolved]

NARRATIVE: CASE EVENT DATE: 20220502
